FAERS Safety Report 6283100-3 (Version None)
Quarter: 2009Q3

REPORT INFORMATION
  Report Type: 
  Country: None (occurrence: None)
  Receive Date: 20090724
  Receipt Date: 20090716
  Transmission Date: 20100115
  Serious: Yes (Other)
  Sender: FDA-Public Use
  Company Number: A0797344A

PATIENT
  Age: 62 Year
  Sex: Female

DRUGS (5)
  1. AVANDAMET [Suspect]
     Dosage: 1TAB TWICE PER DAY
     Route: 048
     Dates: start: 20070101
  2. ENALAPRIL MALEATE [Concomitant]
  3. SIMVASTATIN [Concomitant]
  4. EYE DROPS [Concomitant]
  5. UNKNOWN MEDICATION [Concomitant]

REACTIONS (2)
  - ANKLE FRACTURE [None]
  - JOINT SPRAIN [None]
